FAERS Safety Report 22660138 (Version 1)
Quarter: 2023Q2

REPORT INFORMATION
  Report Type: Spontaneous
  Country: US (occurrence: US)
  Receive Date: 20230630
  Receipt Date: 20230630
  Transmission Date: 20230721
  Serious: Yes (Hospitalization)
  Sender: FDA-Public Use
  Company Number: US-FreseniusKabi-FK202309696

PATIENT
  Age: 44 Year
  Sex: Male

DRUGS (10)
  1. ACETAMINOPHEN [Suspect]
     Active Substance: ACETAMINOPHEN
     Indication: Arthritis bacterial
     Dosage: DOSED AS NEEDED ON HOSPITAL DAYS 0?10
  2. ACETAMINOPHEN [Suspect]
     Active Substance: ACETAMINOPHEN
     Indication: Gout
     Dosage: 1000 MG EVERY 6 HOURS (4000 MG/DAY) STARTING ON?HOSPITAL DAY 11.
  3. VANCOMYCIN [Concomitant]
     Active Substance: VANCOMYCIN
     Indication: Arthritis bacterial
  4. VANCOMYCIN [Concomitant]
     Active Substance: VANCOMYCIN
     Indication: Gout
  5. CEFTRIAXONE [Concomitant]
     Active Substance: CEFTRIAXONE
     Indication: Arthritis bacterial
  6. CEFTRIAXONE [Concomitant]
     Active Substance: CEFTRIAXONE
     Indication: Gout
  7. COLCHICINE [Concomitant]
     Active Substance: COLCHICINE
     Indication: Arthritis bacterial
  8. COLCHICINE [Concomitant]
     Active Substance: COLCHICINE
     Indication: Gout
  9. INDOMETHACIN [Concomitant]
     Active Substance: INDOMETHACIN
     Indication: Arthritis bacterial
  10. INDOMETHACIN [Concomitant]
     Active Substance: INDOMETHACIN
     Indication: Gout

REACTIONS (2)
  - Pyroglutamic acidosis [Recovered/Resolved]
  - Metabolic acidosis [Recovered/Resolved]
